FAERS Safety Report 5467494-4 (Version None)
Quarter: 2007Q3

REPORT INFORMATION
  Report Type: 
  Country: None (occurrence: None)
  Receive Date: 20070925
  Receipt Date: 20070918
  Transmission Date: 20080115
  Serious: Yes (Hospitalization)
  Sender: FDA-Public Use
  Company Number: US-ROXANE LABORATORIES, INC-2007-BP-21272BP

PATIENT
  Sex: Male
  Weight: 95 kg

DRUGS (8)
  1. BIBR 1048 (DABIGATRAN ETEXILATE) (BLIND) [Suspect]
     Indication: CEREBROVASCULAR ACCIDENT PROPHYLAXIS
     Route: 048
  2. BIBR 1048 (DABIGATRAN ETEXILATE) (BLIND) [Suspect]
     Indication: THROMBOSIS PROPHYLAXIS
  3. LASIX [Suspect]
     Indication: HYPERTENSION
     Route: 048
  4. LASIX [Suspect]
     Indication: CARDIAC FAILURE CONGESTIVE
  5. VASOTEC [Suspect]
     Indication: HYPERTENSION
     Route: 048
  6. VASOTEC [Suspect]
     Indication: CARDIAC FAILURE CONGESTIVE
  7. DIGOXIN [Suspect]
     Indication: ISCHAEMIC CARDIOMYOPATHY
     Route: 048
  8. ALDACTONE [Suspect]
     Indication: HYPERTENSION
     Route: 048

REACTIONS (3)
  - CARDIAC FAILURE CONGESTIVE [None]
  - HYPOTENSION [None]
  - RENAL FAILURE [None]
